FAERS Safety Report 6068972-X (Version None)
Quarter: 2009Q1

REPORT INFORMATION
  Report Type: 
  Country: None (occurrence: None)
  Receive Date: 20090206
  Receipt Date: 20090126
  Transmission Date: 20090719
  Serious: Yes (Hospitalization)
  Sender: FDA-Public Use
  Company Number: US-WATSON-2009-00413

PATIENT
  Age: 71 Year
  Sex: Female

DRUGS (2)
  1. DIPHENHYDRAMINE HYDROCHLORIDE (WATSON LABORATORIES) [Suspect]
     Indication: RASH MACULO-PAPULAR
     Dosage: UNK
     Route: 042
     Dates: start: 20080101, end: 20080101
  2. LINEZOLID [Suspect]
     Indication: INFECTION
     Dosage: UNK
     Dates: start: 20080101, end: 20080101

REACTIONS (2)
  - DRUG INTERACTION [None]
  - SEROTONIN SYNDROME [None]
